FAERS Safety Report 8310045-7 (Version None)
Quarter: 2012Q2

REPORT INFORMATION
  Report Type: 
  Country: None (occurrence: None)
  Receive Date: 20120423
  Receipt Date: 20120409
  Transmission Date: 20120825
  Serious: Yes (Death)
  Sender: FDA-Public Use
  Company Number: UTC-017476

PATIENT
  Age: 30 Year
  Sex: Female
  Weight: 86.36 kg

DRUGS (8)
  1. OXYCODONE HCL [Concomitant]
  2. DIURETICS (DIURETICS) [Concomitant]
  3. TYVASO [Suspect]
  4. LITHIUM CARBONATE [Concomitant]
  5. XANAX [Concomitant]
  6. ZOLOFT [Concomitant]
  7. TYVASO [Suspect]
     Indication: PULMONARY ARTERIAL HYPERTENSION
     Dosage: 240 MCG (60 MCG, 4 IN 1 D), INHALATION
     Route: 055
     Dates: start: 20100810
  8. REVATIO [Concomitant]

REACTIONS (1)
  - TREATMENT NONCOMPLIANCE [None]
